FAERS Safety Report 20630843 (Version 2)
Quarter: 2022Q4

REPORT INFORMATION
  Report Type: Spontaneous
  Country: US (occurrence: US)
  Receive Date: 20220324
  Receipt Date: 20221214
  Transmission Date: 20230112
  Serious: Yes (Hospitalization, Other)
  Sender: FDA-Public Use
  Company Number: US-JNJFOC-20220336060

PATIENT
  Age: 9 Decade
  Sex: Female

DRUGS (1)
  1. OPSUMIT [Suspect]
     Active Substance: MACITENTAN
     Indication: Product used for unknown indication
     Route: 048
     Dates: start: 20200323

REACTIONS (6)
  - Urinary tract infection [Unknown]
  - Dyspnoea [Unknown]
  - Muscular weakness [Not Recovered/Not Resolved]
  - Nausea [Unknown]
  - Vomiting [Unknown]
  - Gait disturbance [Unknown]

NARRATIVE: CASE EVENT DATE: 20210101
